FAERS Safety Report 18460694 (Version 1)
Quarter: 2020Q4

REPORT INFORMATION
  Report Type: Spontaneous
  Country: US (occurrence: US)
  Receive Date: 20201104
  Receipt Date: 20201104
  Transmission Date: 20210114
  Serious: No
  Sender: FDA-Public Use
  Company Number: US-AUROBINDO-AUR-APL-2020-024256

PATIENT
  Sex: Female

DRUGS (3)
  1. METOPROLOL TARTRATE FILM COATED TABLETS USP 25 MG [Suspect]
     Active Substance: METOPROLOL TARTRATE
     Indication: TACHYCARDIA
     Dosage: UNK
     Route: 065
  2. METOPROLOL TARTRATE FILM COATED TABLETS USP 25 MG [Suspect]
     Active Substance: METOPROLOL TARTRATE
     Indication: CARDIAC FLUTTER
  3. METOPROLOL TARTRATE FILM COATED TABLETS USP 25 MG [Suspect]
     Active Substance: METOPROLOL TARTRATE
     Indication: HYPOTENSION

REACTIONS (6)
  - Wrong technique in product usage process [Unknown]
  - Adverse event [Unknown]
  - Hypersensitivity [Unknown]
  - Off label use [Unknown]
  - Vomiting [Unknown]
  - Oropharyngeal discomfort [Unknown]
